FAERS Safety Report 17984617 (Version 3)
Quarter: 2020Q4

REPORT INFORMATION
  Report Type: Spontaneous
  Country: US (occurrence: US)
  Receive Date: 20200706
  Receipt Date: 20201210
  Transmission Date: 20210113
  Serious: No
  Sender: FDA-Public Use
  Company Number: US-SA-2020SA173420

PATIENT

DRUGS (16)
  1. HYLATOPICPLUS [Concomitant]
     Active Substance: EMOLLIENTS
  2. PREDNISONE. [Concomitant]
     Active Substance: PREDNISONE
  3. DUPIXENT [Suspect]
     Active Substance: DUPILUMAB
     Indication: PSORIASIS
     Dosage: 300 MG, QOW
     Route: 058
     Dates: start: 20200520
  4. DUPIXENT [Suspect]
     Active Substance: DUPILUMAB
     Indication: DERMATITIS ATOPIC
  5. EUCRISA [Concomitant]
     Active Substance: CRISABOROLE
  6. XYZAL [Concomitant]
     Active Substance: LEVOCETIRIZINE DIHYDROCHLORIDE
  7. ZYRTEC [Concomitant]
     Active Substance: CETIRIZINE HYDROCHLORIDE
  8. TRIAMCINOLONE [Concomitant]
     Active Substance: TRIAMCINOLONE
  9. VANOS [Concomitant]
     Active Substance: FLUOCINONIDE
  10. MUPIROCIN. [Concomitant]
     Active Substance: MUPIROCIN
  11. VITAMINS NOS [Concomitant]
     Active Substance: VITAMINS
  12. DERMA SMOOTH [Concomitant]
  13. TOPICORTE [Concomitant]
     Active Substance: DESOXIMETASONE
  14. DIFLORASONE [Concomitant]
     Active Substance: DIFLORASONE DIACETATE
  15. FLUOCINONIDE. [Concomitant]
     Active Substance: FLUOCINONIDE
  16. AURSTAT [Concomitant]

REACTIONS (7)
  - Dermatitis atopic [Not Recovered/Not Resolved]
  - Conjunctivitis [Not Recovered/Not Resolved]
  - Urinary tract infection [Recovered/Resolved]
  - Product use in unapproved indication [Unknown]
  - Eye infection [Not Recovered/Not Resolved]
  - Arthralgia [Not Recovered/Not Resolved]
  - Rash [Not Recovered/Not Resolved]

NARRATIVE: CASE EVENT DATE: 2020
